FAERS Safety Report 9486529 (Version 1)
Quarter: 2013Q3

REPORT INFORMATION
  Report Type: Spontaneous
  Country: US (occurrence: None)
  Receive Date: 20130827
  Receipt Date: 20130827
  Transmission Date: 20140515
  Serious: Yes (Life-Threatening, Other)
  Sender: FDA-Public Use
  Company Number: None

PATIENT
  Age: 39 Year
  Sex: Female
  Weight: 80.74 kg

DRUGS (1)
  1. LEVOTHYROXIN [Suspect]
     Indication: HYPOTHYROIDISM
     Route: 048
     Dates: start: 20130812, end: 20130822

REACTIONS (13)
  - Dyspnoea [None]
  - Hyperhidrosis [None]
  - Nervousness [None]
  - Anxiety [None]
  - Syncope [None]
  - Paranoia [None]
  - Panic reaction [None]
  - Fear [None]
  - Self-injurious ideation [None]
  - Disturbance in attention [None]
  - Abdominal pain upper [None]
  - Chest discomfort [None]
  - Phobia [None]
